FAERS Safety Report 9471132 (Version 2)
Quarter: 2013Q3

REPORT INFORMATION
  Report Type: Spontaneous
  Country: US (occurrence: None)
  Receive Date: 20130816
  Receipt Date: 20130912
  Transmission Date: 20140515
  Serious: Yes (Other)
  Sender: FDA-Public Use
  Company Number: JPI-P-034428

PATIENT
  Age: 28 Year
  Sex: Female

DRUGS (2)
  1. XYREM [Suspect]
     Indication: CATAPLEXY
     Dosage: 4.5 GM(2.25 GM, 2 IN 1 D),ORAL
     Route: 048
     Dates: start: 20021112, end: 2002
  2. XYREM [Suspect]
     Indication: NARCOLEPSY
     Dosage: 4.5 GM(2.25 GM, 2 IN 1 D),ORAL
     Route: 048
     Dates: start: 20021112, end: 2002

REACTIONS (2)
  - Road traffic accident [None]
  - Shoulder operation [None]
